FAERS Safety Report 24721470 (Version 1)
Quarter: 2024Q4

REPORT INFORMATION
  Report Type: Spontaneous
  Country: US (occurrence: US)
  Receive Date: 20241211
  Receipt Date: 20241211
  Transmission Date: 20250114
  Serious: No
  Sender: RECKITT BENCKISER
  Company Number: US-PROD-AS2-212756134-20-24-USA-RB-0008238

PATIENT
  Sex: Female

DRUGS (4)
  1. DELSYM [Suspect]
     Active Substance: DEXTROMETHORPHAN
     Indication: Nasopharyngitis
     Dosage: TWICE A DAY
     Route: 048
     Dates: start: 20240716, end: 20240717
  2. DELSYM [Suspect]
     Active Substance: DEXTROMETHORPHAN
     Indication: Respiratory tract congestion
  3. TYLENOL [Concomitant]
     Active Substance: ACETAMINOPHEN
     Indication: Asthma
     Dosage: UNKNOWN
     Route: 065
  4. ALBUTEROL [Concomitant]
     Active Substance: ALBUTEROL
     Indication: Product used for unknown indication
     Dosage: UNKNOWN
     Route: 065

REACTIONS (1)
  - Headache [Recovered/Resolved]

NARRATIVE: CASE EVENT DATE: 20240716
